FAERS Safety Report 5481391-X (Version None)
Quarter: 2007Q4

REPORT INFORMATION
  Report Type: 
  Country: None (occurrence: None)
  Receive Date: 20071005
  Receipt Date: 20071005
  Transmission Date: 20080405
  Serious: Yes (Life-Threatening, Hospitalization, Other)
  Sender: FDA-Public Use
  Company Number: None

PATIENT
  Age: 50 Year
  Sex: Female
  Weight: 72.5755 kg

DRUGS (1)
  1. EVISTA [Suspect]
     Indication: HORMONE REPLACEMENT THERAPY
     Dosage: 60 MG. 1 X A DAY PO
     Route: 048
     Dates: start: 19980911, end: 20001222

REACTIONS (6)
  - DEEP VEIN THROMBOSIS [None]
  - FEELING ABNORMAL [None]
  - HAEMORRHAGE [None]
  - INTERNATIONAL NORMALISED RATIO FLUCTUATION [None]
  - PAIN [None]
  - PROTHROMBIN TIME ABNORMAL [None]
